FAERS Safety Report 6317900-8 (Version None)
Quarter: 2009Q3

REPORT INFORMATION
  Report Type: 
  Country: None (occurrence: None)
  Receive Date: 20090821
  Receipt Date: 20090811
  Transmission Date: 20100115
  Serious: Yes (Life-Threatening, Hospitalization, Other)
  Sender: FDA-Public Use
  Company Number: DE-BAYER-200928179GPV

PATIENT
  Age: 21 Year
  Sex: Female
  Weight: 200 kg

DRUGS (3)
  1. ASPIRIN [Suspect]
     Indication: HEADACHE
     Dosage: 2-3 TIMES A WEEK 2-3 500 MG TABLETS DAILY
     Route: 048
     Dates: start: 20050101, end: 20090716
  2. DOLORMIN EXTRA (IBUPROFEN) [Suspect]
     Indication: HEADACHE
     Dosage: 2-3 TIMES A WEEK 1-2 FILM-COATED 400 MG TABLETS DAILY
     Route: 048
     Dates: start: 20090602, end: 20090630
  3. IBUBETA [Suspect]
     Indication: DRUG USE FOR UNKNOWN INDICATION
     Route: 048
     Dates: start: 20090715, end: 20090716

REACTIONS (8)
  - EAR DISCOMFORT [None]
  - HAEMATOMA [None]
  - HAEMOGLOBIN DECREASED [None]
  - HEADACHE [None]
  - MENORRHAGIA [None]
  - NAUSEA [None]
  - THROMBOTIC THROMBOCYTOPENIC PURPURA [None]
  - VOMITING [None]
